FAERS Safety Report 23786409 (Version 3)
Quarter: 2024Q2

REPORT INFORMATION
  Report Type: Spontaneous
  Country: US (occurrence: None)
  Receive Date: 20240426
  Receipt Date: 20240513
  Transmission Date: 20240716
  Serious: Yes (Death, Hospitalization)
  Sender: FDA-Public Use
  Company Number: US-ROCHE-3551406

PATIENT
  Sex: Female

DRUGS (2)
  1. OCREVUS [Suspect]
     Active Substance: OCRELIZUMAB
     Indication: Secondary progressive multiple sclerosis
     Dosage: LAST INFUSION ON 27/NOV/2023
     Route: 065
     Dates: start: 201710
  2. CELLCEPT [Suspect]
     Active Substance: MYCOPHENOLATE MOFETIL
     Indication: Product used for unknown indication
     Route: 065

REACTIONS (9)
  - Sepsis [Fatal]
  - Pneumonia [Fatal]
  - Chronic obstructive pulmonary disease [Unknown]
  - Hypoxia [Unknown]
  - Pneumonia aspiration [Unknown]
  - Bronchiectasis [Unknown]
  - Pleural effusion [Unknown]
  - Hypotension [Unknown]
  - Wound [Unknown]
